FAERS Safety Report 18256529 (Version 1)
Quarter: 2020Q3

REPORT INFORMATION
  Report Type: Spontaneous
  Country: US (occurrence: US)
  Receive Date: 20200910
  Receipt Date: 20200910
  Transmission Date: 20201103
  Serious: No
  Sender: FDA-Public Use
  Company Number: None

PATIENT
  Sex: Female

DRUGS (1)
  1. IMATINIB MES 400M MG TAB [Suspect]
     Active Substance: IMATINIB MESYLATE
     Indication: GASTROINTESTINAL STROMAL TUMOUR
     Dosage: ?          OTHER DOSE:1 TAB;?
     Route: 048
     Dates: start: 20180404

REACTIONS (4)
  - Pancreatic operation [None]
  - Abdominal pain [None]
  - Gastric operation [None]
  - Therapy interrupted [None]
